FAERS Safety Report 11679049 (Version 1)
Quarter: 2015Q4

REPORT INFORMATION
  Report Type: Spontaneous
  Country: US (occurrence: US)
  Receive Date: 20151027
  Receipt Date: 20151027
  Transmission Date: 20160304
  Serious: No
  Sender: FDA-Public Use
  Company Number: US-ELI_LILLY_AND_COMPANY-US201007001953

PATIENT
  Sex: Female

DRUGS (3)
  1. FORTEO [Suspect]
     Active Substance: TERIPARATIDE
     Indication: OSTEOPOROSIS
     Dosage: 20 UG, DAILY (1/D)
     Route: 058
  2. FORTEO [Suspect]
     Active Substance: TERIPARATIDE
     Dosage: 20 UG, DAILY (1/D)
     Route: 058
  3. FORTEO [Suspect]
     Active Substance: TERIPARATIDE
     Dosage: 20 UG, DAILY (1/D)

REACTIONS (16)
  - Skin fissures [Unknown]
  - Pollakiuria [Not Recovered/Not Resolved]
  - Scab [Not Recovered/Not Resolved]
  - Pruritus [Unknown]
  - Arthralgia [Not Recovered/Not Resolved]
  - Foreign body sensation in eyes [Unknown]
  - Intentional device misuse [Unknown]
  - Back pain [Unknown]
  - Micturition urgency [Unknown]
  - Skin haemorrhage [Unknown]
  - Dry skin [Not Recovered/Not Resolved]
  - Hypersensitivity [Unknown]
  - Skin burning sensation [Unknown]
  - Decreased appetite [Unknown]
  - Lacrimation increased [Not Recovered/Not Resolved]
  - Vision blurred [Unknown]
